FAERS Safety Report 8133619-5 (Version None)
Quarter: 2012Q1

REPORT INFORMATION
  Report Type: 
  Country: None (occurrence: None)
  Receive Date: 20120213
  Receipt Date: 20120116
  Transmission Date: 20120608
  Serious: Yes (Other)
  Sender: FDA-Public Use
  Company Number: DE-ROCHE-1034786

PATIENT
  Age: 65 Year

DRUGS (1)
  1. MABTHERA [Suspect]
     Indication: NEPHROTIC SYNDROME

REACTIONS (6)
  - URINARY TRACT INFECTION PSEUDOMONAL [None]
  - BRONCHOPULMONARY ASPERGILLOSIS [None]
  - PSEUDOMEMBRANOUS COLITIS [None]
  - POSTERIOR REVERSIBLE ENCEPHALOPATHY SYNDROME [None]
  - PULMONARY EMBOLISM [None]
  - PNEUMOCYSTIS JIROVECI PNEUMONIA [None]
